FAERS Safety Report 15318466 (Version 1)
Quarter: 2018Q3

REPORT INFORMATION
  Report Type: Spontaneous
  Country: US (occurrence: US)
  Receive Date: 20180817
  Receipt Date: 20180817
  Transmission Date: 20181010
  Serious: Yes (Disabling)
  Sender: FDA-Public Use
  Company Number: None

PATIENT
  Age: 63 Year
  Sex: Female
  Weight: 84.6 kg

DRUGS (8)
  1. CALCIUM [Concomitant]
     Active Substance: CALCIUM
  2. VALSARTYN HCT [Concomitant]
  3. FLAXSEED [Concomitant]
     Active Substance: FLAX SEED
  4. VITAMIN D3 [Concomitant]
     Active Substance: CHOLECALCIFEROL
  5. AUBAGIO [Suspect]
     Active Substance: TERIFLUNOMIDE
     Indication: MULTIPLE SCLEROSIS
     Route: 048
  6. MULTI VITAMIN [Concomitant]
     Active Substance: VITAMINS
  7. SERTRALINE [Concomitant]
     Active Substance: SERTRALINE HYDROCHLORIDE
  8. CURCUMIN [Concomitant]
     Active Substance: CURCUMIN

REACTIONS (1)
  - Lichen planus [None]

NARRATIVE: CASE EVENT DATE: 20180418
